FAERS Safety Report 7818162 (Version 4)
Quarter: 2013Q2

REPORT INFORMATION
  Report Type: Report from Study
  Country: CA (occurrence: CA)
  Receive Date: 20110218
  Receipt Date: 20130516
  Transmission Date: 20140414
  Serious: Yes (Other)
  Sender: FDA-Public Use
  Company Number: CA-CELGENEUS-028-C5013-11020830

PATIENT
  Age: 73 Year
  Sex: Male
  Weight: 63.5 kg

DRUGS (33)
  1. CC-5013 [Suspect]
     Indication: PLASMA CELL MYELOMA
     Dosage: 25 MILLIGRAM
     Route: 048
     Dates: start: 20090813
  2. CC-5013 [Suspect]
     Dosage: 25 MILLIGRAM
     Route: 048
     Dates: end: 20101222
  3. DEXAMETHASONE [Suspect]
     Indication: PLASMA CELL MYELOMA
     Dosage: 40 MILLIGRAM
     Route: 065
     Dates: start: 20090813
  4. DEXAMETHASONE [Suspect]
     Dosage: 40 MILLIGRAM
     Route: 065
     Dates: end: 20101230
  5. ASPIRIN [Concomitant]
     Indication: THROMBOSIS PROPHYLAXIS
     Dosage: 81 MILLIGRAM
     Route: 048
     Dates: start: 20090813, end: 20110105
  6. MULTIVITAMINS [Concomitant]
     Indication: SUPPLEMENTATION THERAPY
     Route: 065
     Dates: start: 200906
  7. VITAMIN B [Concomitant]
     Indication: SUPPLEMENTATION THERAPY
     Route: 065
     Dates: start: 200906, end: 200909
  8. VITAMIN C [Concomitant]
     Indication: SUPPLEMENTATION THERAPY
     Route: 065
     Dates: start: 200906, end: 200909
  9. IRON [Concomitant]
     Indication: MINERAL SUPPLEMENTATION
     Route: 065
     Dates: start: 200906
  10. LAMIVUDINE [Concomitant]
     Indication: PROPHYLAXIS
     Dosage: 5-100 MG
     Route: 065
     Dates: start: 20090805
  11. IMMODIUM [Concomitant]
     Indication: DIARRHOEA
     Dosage: 1-2
     Route: 065
     Dates: start: 20090924, end: 20090925
  12. IMMODIUM [Concomitant]
     Dosage: 1-2
     Route: 065
     Dates: start: 201002, end: 201009
  13. CIPROFLOXACIN [Concomitant]
     Indication: PROPHYLAXIS
     Dosage: 500 MILLIGRAM
     Route: 065
     Dates: start: 20090921, end: 20090922
  14. CIPROFLOXACIN [Concomitant]
     Dosage: 500 MILLIGRAM
     Route: 065
     Dates: start: 20090929, end: 20091001
  15. CIPROFLOXACIN [Concomitant]
     Dosage: 500 MILLIGRAM
     Route: 065
     Dates: start: 20100803, end: 20100809
  16. AMPICILLIN [Concomitant]
     Indication: PROPHYLAXIS
     Dosage: 2 GRAM
     Route: 065
     Dates: start: 20090922, end: 20090924
  17. CEFTRIAXONE [Concomitant]
     Indication: PROPHYLAXIS
     Dosage: 1 GRAM
     Route: 065
     Dates: start: 20090922, end: 20090922
  18. CLINDAMYCIN [Concomitant]
     Indication: PROPHYLAXIS
     Dosage: 600 MILLIGRAM
     Route: 065
     Dates: start: 20090921, end: 20090922
  19. ZOPLICIONE [Concomitant]
     Indication: PROPHYLAXIS
     Dosage: 3.75-7.5 MG
     Route: 065
     Dates: start: 20090921, end: 20090924
  20. MORPHINE [Concomitant]
     Indication: PAIN
     Dosage: 2-4 MG
     Route: 065
     Dates: start: 20090921, end: 20090924
  21. DIMENHYDRINATE [Concomitant]
     Indication: NAUSEA
     Dosage: 25-50 MG
     Route: 065
     Dates: start: 20090921, end: 20090924
  22. ACETAMINOPHEN [Concomitant]
     Indication: PAIN
     Dosage: 500-1000 MG
     Route: 065
     Dates: start: 20090921, end: 20090924
  23. ACETAMINOPHEN [Concomitant]
     Indication: PYREXIA
  24. PAMIDRONATE [Concomitant]
     Indication: PROPHYLAXIS
     Dosage: 90 MILLIGRAM
     Route: 065
     Dates: start: 20090812
  25. METRONIDAZOLE [Concomitant]
     Indication: PROPHYLAXIS
     Dosage: 500 MILLIGRAM
     Route: 065
     Dates: start: 20100803, end: 20100809
  26. ADEFOVIR DIPIOVOXIL [Concomitant]
     Indication: HEPATITIS B
     Dosage: 10 MILLIGRAM
     Route: 065
     Dates: start: 20101021
  27. BIAXIN [Concomitant]
     Indication: UPPER RESPIRATORY TRACT INFECTION
     Dosage: 1 GRAM
     Route: 065
     Dates: start: 20100910, end: 20100917
  28. AZITHROMYCIN [Concomitant]
     Indication: UPPER RESPIRATORY TRACT INFECTION
     Dosage: 250 MILLIGRAM
     Route: 065
     Dates: start: 20101223, end: 20101223
  29. AZITHROMYCIN [Concomitant]
     Dosage: 250 MILLIGRAM
     Route: 065
     Dates: start: 20101224, end: 20101227
  30. CALCIUM [Concomitant]
     Indication: PROPHYLAXIS
     Dosage: 1000 MILLIGRAM
     Route: 065
     Dates: start: 20110108
  31. VITAMIN D [Concomitant]
     Indication: PROPHYLAXIS
     Dosage: 10000
     Route: 065
     Dates: start: 20110108
  32. FERROUS FUMERATE [Concomitant]
     Indication: ANAEMIA
     Dosage: 300 MILLIGRAM
     Route: 065
     Dates: start: 20110406
  33. VITAMIN B12 [Concomitant]
     Indication: VITAMIN B12 DEFICIENCY
     Dosage: 100
     Route: 065
     Dates: start: 20110406

REACTIONS (1)
  - Hepatocellular carcinoma [Recovered/Resolved]
